FAERS Safety Report 4901852-9 (Version None)
Quarter: 2006Q1

REPORT INFORMATION
  Report Type: 
  Country: None (occurrence: None)
  Receive Date: 20060203
  Receipt Date: 20060203
  Transmission Date: 20060701
  Serious: No
  Sender: FDA-Public Use
  Company Number: None

PATIENT
  Age: 74 Year
  Sex: Female

DRUGS (1)
  1. AMIODARONE [Suspect]
     Dates: start: 20050503, end: 20050503

REACTIONS (2)
  - LUPUS-LIKE SYNDROME [None]
  - SYNOVITIS [None]
